FAERS Safety Report 11751589 (Version 1)
Quarter: 2015Q4

REPORT INFORMATION
  Report Type: Spontaneous
  Country: SE (occurrence: SE)
  Receive Date: 20151118
  Receipt Date: 20151118
  Transmission Date: 20160304
  Serious: No
  Sender: FDA-Public Use
  Company Number: SE-PHOTOCURE ASA-HX-PM-SE-150500003

PATIENT
  Age: 73 Year
  Sex: Male

DRUGS (1)
  1. HEXVIX (HEXYL AMINOLEVULINATE HYDROCHLORIDE) [Suspect]
     Active Substance: HEXAMINOLEVULINATE HYDROCHLORIDE
     Indication: TRANSURETHRAL BLADDER RESECTION
     Dosage: UNKNOWN
     Route: 065
     Dates: start: 20150504, end: 20150504

REACTIONS (1)
  - Drug ineffective [Recovered/Resolved]

NARRATIVE: CASE EVENT DATE: 20150504
